FAERS Safety Report 13294451 (Version 3)
Quarter: 2017Q3

REPORT INFORMATION
  Report Type: Report from Study
  Country: CA (occurrence: CA)
  Receive Date: 20170303
  Receipt Date: 20170804
  Transmission Date: 20171127
  Serious: Yes (Other)
  Sender: FDA-Public Use
  Company Number: CA-HLSUS-2016-CA-000615

PATIENT
  Age: 78 Year
  Sex: Male

DRUGS (5)
  1. ALFUZOSIN [Concomitant]
     Active Substance: ALFUZOSIN
  2. ENTACAPONE. [Concomitant]
     Active Substance: ENTACAPONE
     Indication: PARKINSON^S DISEASE
     Dosage: 1 TABLET TWICE DAILY
     Route: 048
     Dates: start: 201001
  3. CLOZARIL [Suspect]
     Active Substance: CLOZAPINE
     Indication: PARKINSON^S DISEASE PSYCHOSIS
     Route: 048
     Dates: start: 20160627, end: 20161014
  4. SENOKOT [Concomitant]
     Active Substance: SENNOSIDES
  5. SINEMET [Concomitant]
     Active Substance: CARBIDOPA\LEVODOPA
     Indication: PARKINSON^S DISEASE
     Dosage: 2 TAB TID
     Route: 048
     Dates: start: 201001

REACTIONS (3)
  - Constipation [Unknown]
  - Pneumonia [Unknown]
  - Influenza [Unknown]

NARRATIVE: CASE EVENT DATE: 20170112
